FAERS Safety Report 9216543 (Version 1)
Quarter: 2013Q2

REPORT INFORMATION
  Report Type: Spontaneous
  Country: FR (occurrence: FR)
  Receive Date: 20130408
  Receipt Date: 20130408
  Transmission Date: 20140414
  Serious: Yes (Hospitalization)
  Sender: FDA-Public Use
  Company Number: FR-SANOFI-AVENTIS-2013SA035829

PATIENT
  Age: 80 Year
  Sex: Female

DRUGS (14)
  1. LASILIX [Suspect]
     Indication: ATRIAL FIBRILLATION
     Route: 048
     Dates: start: 20121123, end: 20130104
  2. CORDARONE [Suspect]
     Indication: ATRIAL FIBRILLATION
     Route: 048
     Dates: start: 20121123, end: 20130104
  3. ALDACTONE [Suspect]
     Indication: ATRIAL FIBRILLATION
     Route: 048
     Dates: start: 20121127, end: 20130104
  4. HEMIGOXINE NATIVELLE [Suspect]
     Indication: ATRIAL FIBRILLATION
     Route: 048
     Dates: start: 20121127, end: 20130104
  5. HYTACAND [Suspect]
     Indication: ATRIAL FIBRILLATION
     Route: 048
     Dates: start: 20121127, end: 20130104
  6. DIFFU K [Suspect]
     Indication: PRODUCT USED FOR UNKNOWN INDICATION
     Route: 048
     Dates: start: 20121123, end: 20130104
  7. PULMICORT [Concomitant]
     Route: 055
  8. PREVISCAN [Concomitant]
     Dosage: STRENGTH: 20 MG
     Route: 048
  9. SINGULAIR [Concomitant]
     Dosage: STRENGTH: 10 MG
     Route: 048
  10. PANTOPRAZOLE [Concomitant]
     Dosage: STRENGTH: 40 MG
     Route: 048
  11. XYZALL [Concomitant]
     Dosage: STRENGTH: 5 MG
     Route: 048
     Dates: start: 20121127, end: 20130104
  12. ALPHAGAN [Concomitant]
     Dosage: STRENGTH: 0.2%
     Route: 047
  13. ATROVENT [Concomitant]
     Route: 055
  14. BRICANYL [Concomitant]
     Route: 055

REACTIONS (4)
  - Hyperkalaemia [Recovered/Resolved]
  - Bradycardia [Recovered/Resolved]
  - Renal failure acute [Recovered/Resolved]
  - Condition aggravated [Recovered/Resolved]
